FAERS Safety Report 5225572-9 (Version None)
Quarter: 2007Q1

REPORT INFORMATION
  Report Type: 
  Country: None (occurrence: None)
  Receive Date: 20070131
  Receipt Date: 20070122
  Transmission Date: 20070707
  Serious: Yes (Other)
  Sender: FDA-Public Use
  Company Number: AU-PFIZER INC-2007006810

PATIENT
  Age: 65 Year
  Sex: Male

DRUGS (1)
  1. NORVASC [Suspect]
     Dosage: TEXT:UNKNOWN
     Route: 065

REACTIONS (4)
  - CHOLECYSTITIS [None]
  - JAUNDICE [None]
  - LIVER FUNCTION TEST ABNORMAL [None]
  - PRURITUS [None]
